FAERS Safety Report 4611395-8 (Version None)
Quarter: 2005Q2

REPORT INFORMATION
  Report Type: 
  Country: None (occurrence: None)
  Receive Date: 20050311
  Receipt Date: 20041228
  Transmission Date: 20051028
  Serious: No
  Sender: FDA-Public Use
  Company Number: 2004-BP-14531BP

PATIENT
  Age: 53 Year
  Sex: Male

DRUGS (4)
  1. SPIRIVA [Suspect]
     Dosage: 18 MCG (18 MCG), IH
     Route: 055
     Dates: start: 20040801
  2. SPIRIVA [Suspect]
     Dosage: 18 MCG (18 MCG), IH
     Route: 055
     Dates: start: 20040801
  3. FLOVENT [Concomitant]
  4. CLARINEX [Concomitant]

REACTIONS (1)
  - DRUG INEFFECTIVE [None]
